FAERS Safety Report 4754365-1 (Version None)
Quarter: 2005Q3

REPORT INFORMATION
  Report Type: 
  Country: None (occurrence: None)
  Receive Date: 20050829
  Receipt Date: 20050822
  Transmission Date: 20060218
  Serious: Yes (Other)
  Sender: FDA-Public Use
  Company Number: PHEH2005US09318

PATIENT
  Age: 57 Year
  Sex: Female

DRUGS (2)
  1. FEMARA [Suspect]
     Indication: BREAST CANCER
     Dosage: 2.5 MG, QD
     Route: 048
     Dates: start: 20020101, end: 20050819
  2. DIOVAN [Concomitant]

REACTIONS (4)
  - HEPATIC LESION [None]
  - HEPATIC NEOPLASM MALIGNANT [None]
  - MOLE EXCISION [None]
  - PIGMENTED NAEVUS [None]
